FAERS Safety Report 23214170 (Version 3)
Quarter: 2024Q4

REPORT INFORMATION
  Report Type: Spontaneous
  Country: CZ (occurrence: CZ)
  Receive Date: 20231121
  Receipt Date: 20241114
  Transmission Date: 20250114
  Serious: No
  Sender: MYLAN
  Company Number: CZ-TEVA-2023-CZ-2941087

PATIENT
  Age: 27 Year
  Sex: Male

DRUGS (8)
  1. OLANZAPINE [Suspect]
     Active Substance: OLANZAPINE
     Indication: Psychotic disorder
     Dosage: 25 MILLIGRAM DAILY; 25 MG P.D
     Route: 048
  2. OLANZAPINE [Suspect]
     Active Substance: OLANZAPINE
     Indication: Schizophrenia
     Dosage: 30 MILLIGRAM DAILY; 30 MG P.D
     Route: 048
  3. ARIPIPRAZOLE [Suspect]
     Active Substance: ARIPIPRAZOLE
     Indication: Schizophrenia
     Dosage: 10 MILLIGRAM DAILY; 10 MG P.D
     Route: 048
  4. CHLORPROTHIXENE [Concomitant]
     Active Substance: CHLORPROTHIXENE
     Indication: Psychotic disorder
     Dosage: 100 MILLIGRAM, QD IN THE EVENING
     Route: 065
  5. CHLORPROTHIXENE [Concomitant]
     Active Substance: CHLORPROTHIXENE
     Indication: Schizophrenia
  6. CLONAZEPAM [Concomitant]
     Active Substance: CLONAZEPAM
     Indication: Schizophrenia
     Dosage: 4 MILLIGRAM, QD
     Route: 065
  7. HALOPERIDOL [Concomitant]
     Active Substance: HALOPERIDOL
     Indication: Schizophrenia
     Dosage: 3 MILLIGRAM, QD
     Route: 048
  8. HALOPERIDOL DECANOATE [Concomitant]
     Active Substance: HALOPERIDOL DECANOATE
     Indication: Schizophrenia
     Dosage: 50 MILLIGRAM, Q2W
     Route: 030

REACTIONS (8)
  - Discomfort [Recovered/Resolved]
  - Restlessness [Recovered/Resolved]
  - Social avoidant behaviour [Unknown]
  - Irritability [Recovered/Resolved]
  - Insomnia [Recovered/Resolved]
  - Akathisia [Recovered/Resolved]
  - Anxiety [Recovered/Resolved]
  - Treatment noncompliance [Recovered/Resolved]
